FAERS Safety Report 5159328-2 (Version None)
Quarter: 2006Q4

REPORT INFORMATION
  Report Type: 
  Country: None (occurrence: None)
  Receive Date: 20061120
  Receipt Date: 20061108
  Transmission Date: 20070319
  Serious: Yes (Other)
  Sender: FDA-Public Use
  Company Number: TPA2006A02021

PATIENT
  Age: 64 Year
  Sex: Female
  Weight: 92.0802 kg

DRUGS (9)
  1. ACTOS [Suspect]
     Indication: DIABETES MELLITUS NON-INSULIN-DEPENDENT
     Dosage: 15 MG, 1 IN 1 D, PER ORAL
     Route: 048
     Dates: start: 20060927, end: 20061001
  2. ACTOS [Suspect]
     Indication: DIABETES MELLITUS NON-INSULIN-DEPENDENT
     Dosage: 15 MG, 1 IN 1 D, PER ORAL
     Route: 048
     Dates: start: 20061011, end: 20061025
  3. ACTOS [Suspect]
     Indication: DIABETES MELLITUS NON-INSULIN-DEPENDENT
     Dosage: 15 MG, 1 IN 1 D, PER ORAL
     Route: 048
     Dates: start: 20061026, end: 20061107
  4. ACTOS [Suspect]
     Indication: DIABETES MELLITUS NON-INSULIN-DEPENDENT
     Dosage: 15 MG, 1 IN 1 D, PER ORAL
     Route: 048
     Dates: start: 20061108
  5. METFORMIN HCL [Concomitant]
  6. AMARYL [Concomitant]
  7. NEXIUM [Concomitant]
  8. UREA CREAM 40% (UREA) (CREAM) [Concomitant]
  9. FLEXERIL [Concomitant]

REACTIONS (14)
  - AFFECT LABILITY [None]
  - BLINDNESS [None]
  - BLOOD GLUCOSE INCREASED [None]
  - DIZZINESS [None]
  - DYSGEUSIA [None]
  - HEPATIC PAIN [None]
  - INCORRECT DOSE ADMINISTERED [None]
  - INCREASED APPETITE [None]
  - INSOMNIA [None]
  - NAUSEA [None]
  - SELF-MEDICATION [None]
  - TACHYPNOEA [None]
  - WEIGHT INCREASED [None]
  - WEIGHT LOSS POOR [None]
